FAERS Safety Report 8824012 (Version 1)
Quarter: 2012Q4

REPORT INFORMATION
  Report Type: 
  Country: US (occurrence: US)
  Receive Date: 20121003
  Receipt Date: 20121003
  Transmission Date: 20130627
  Serious: Yes (Hospitalization)
  Sender: FDA-Public Use
  Company Number: US-MERCK-1210USA000821

PATIENT
  Age: 40 Year
  Sex: Female

DRUGS (1)
  1. JANUMET [Suspect]
     Dosage: 1 DF, bid
     Route: 048

REACTIONS (10)
  - Palpitations [Unknown]
  - Throat tightness [Unknown]
  - Urticaria [Unknown]
  - Heart rate increased [Unknown]
  - Dyspnoea [Unknown]
  - Fatigue [Unknown]
  - Lung disorder [Unknown]
  - Chest discomfort [Unknown]
  - Wheezing [Unknown]
  - Sensation of heaviness [Unknown]
